FAERS Safety Report 21881088 (Version 1)
Quarter: 2023Q1

REPORT INFORMATION
  Report Type: Report from Study
  Country: US (occurrence: US)
  Receive Date: 20230118
  Receipt Date: 20230118
  Transmission Date: 20230417
  Serious: No
  Sender: FDA-Public Use
  Company Number: US-ABBVIE-22K-163-4447062-00

PATIENT
  Age: 25 Year
  Sex: Female

DRUGS (3)
  1. SKYRIZI [Suspect]
     Active Substance: RISANKIZUMAB-RZAA
     Indication: Psoriasis
     Dosage: WEEK 0
     Route: 058
     Dates: start: 202206, end: 202206
  2. SKYRIZI [Suspect]
     Active Substance: RISANKIZUMAB-RZAA
     Indication: Psoriatic arthropathy
     Dosage: WEEK 4?THE DRUG START DATE SHOULD BE 2022.
     Route: 058
     Dates: end: 202209
  3. SKYRIZI [Suspect]
     Active Substance: RISANKIZUMAB-RZAA
     Indication: Psoriasis

REACTIONS (8)
  - COVID-19 [Not Recovered/Not Resolved]
  - Pulmonary function test decreased [Unknown]
  - Feeling abnormal [Unknown]
  - Illness [Unknown]
  - Sinusitis [Recovering/Resolving]
  - Psoriasis [Unknown]
  - Occupational exposure to communicable disease [Unknown]
  - Immunosuppression [Unknown]

NARRATIVE: CASE EVENT DATE: 20220625
